FAERS Safety Report 10238607 (Version 2)
Quarter: 2014Q3

REPORT INFORMATION
  Report Type: Spontaneous
  Country: US (occurrence: US)
  Receive Date: 20140616
  Receipt Date: 20140717
  Transmission Date: 20150326
  Serious: Yes (Other)
  Sender: FDA-Public Use
  Company Number: US-SA-2014SA074697

PATIENT
  Sex: Female

DRUGS (4)
  1. LANTUS [Suspect]
     Active Substance: INSULIN GLARGINE
     Indication: DIABETES MELLITUS
     Route: 065
  2. LOSARTAN [Concomitant]
     Active Substance: LOSARTAN
     Indication: HYPERTENSION
  3. LANTUS [Suspect]
     Active Substance: INSULIN GLARGINE
     Indication: DIABETES MELLITUS
     Route: 065
  4. POTASSIUM [Concomitant]
     Active Substance: POTASSIUM

REACTIONS (6)
  - Hypertension [Unknown]
  - Drug dose omission [Unknown]
  - Blood glucose increased [Unknown]
  - Drug administration error [Unknown]
  - Glycosylated haemoglobin increased [Unknown]
  - Hip surgery [Unknown]

NARRATIVE: CASE EVENT DATE: 2013
